FAERS Safety Report 5978111-9 (Version None)
Quarter: 2008Q4

REPORT INFORMATION
  Report Type: 
  Country: None (occurrence: None)
  Receive Date: 20081126
  Receipt Date: 20081117
  Transmission Date: 20090506
  Serious: Yes (Hospitalization)
  Sender: FDA-Public Use
  Company Number: 231935K08USA

PATIENT
  Age: 36 Year
  Sex: Female
  Weight: 103 kg

DRUGS (2)
  1. REBIF [Suspect]
     Indication: MULTIPLE SCLEROSIS
     Dosage: 44 MCG, 3 IN 1 WEEKS, SUBCUTANEOUS
     Route: 058
     Dates: start: 20080117
  2. PRISTIQ [Suspect]
     Indication: DEPRESSION
     Dates: start: 20080801, end: 20081101

REACTIONS (6)
  - CONVULSION [None]
  - DEPRESSION [None]
  - FALL [None]
  - HEAD INJURY [None]
  - HYPOTHYROIDISM [None]
  - TONGUE BITING [None]
